FAERS Safety Report 6133093-4 (Version None)
Quarter: 2009Q1

REPORT INFORMATION
  Report Type: 
  Country: None (occurrence: None)
  Receive Date: 20090326
  Receipt Date: 20090318
  Transmission Date: 20090719
  Serious: Yes (Hospitalization)
  Sender: FDA-Public Use
  Company Number: AU-BIOGENIDEC-2008BI032348

PATIENT
  Age: 58 Year
  Sex: Female

DRUGS (8)
  1. TYSABRI [Suspect]
     Indication: RELAPSING-REMITTING MULTIPLE SCLEROSIS
     Route: 042
     Dates: start: 20081126
  2. TEMAZEPAM [Concomitant]
     Indication: SLEEP DISORDER
  3. BACLOFEN [Concomitant]
     Indication: MUSCLE RELAXANT THERAPY
  4. OXYBUTYNIN CHLORIDE [Concomitant]
     Indication: POLLAKIURIA
  5. ASCORBIC ACID [Concomitant]
     Indication: VITAMIN SUPPLEMENTATION
  6. OSTELIN VIT D/CALCIUM [Concomitant]
     Indication: VITAMIN SUPPLEMENTATION
  7. EFFEXOR [Concomitant]
     Indication: ANTIDEPRESSANT THERAPY
  8. PARACETAMOL [Concomitant]
     Indication: PAIN

REACTIONS (3)
  - DEEP VEIN THROMBOSIS [None]
  - MUSCULOSKELETAL PAIN [None]
  - NECK PAIN [None]
